FAERS Safety Report 19581176 (Version 1)
Quarter: 2021Q3

REPORT INFORMATION
  Report Type: Spontaneous
  Country: US (occurrence: US)
  Receive Date: 20210719
  Receipt Date: 20210719
  Transmission Date: 20211014
  Serious: No
  Sender: FDA-Public Use
  Company Number: US-NOVOPROD-813443

PATIENT
  Age: 76 Year
  Sex: Female

DRUGS (3)
  1. OZEMPIC [Suspect]
     Active Substance: SEMAGLUTIDE
     Indication: PRODUCT USED FOR UNKNOWN INDICATION
     Dosage: 0.25 MG, QW
     Route: 058
     Dates: start: 20210512
  2. FIASP [Concomitant]
     Active Substance: INSULIN ASPART
     Indication: PRODUCT USED FOR UNKNOWN INDICATION
     Dosage: 10 IU WITH MEALS
     Route: 058
     Dates: start: 2019, end: 20210513
  3. TRESIBA [Concomitant]
     Active Substance: INSULIN DEGLUDEC
     Indication: PRODUCT USED FOR UNKNOWN INDICATION
     Dosage: 24 IU, QD
     Route: 058
     Dates: start: 2019

REACTIONS (3)
  - Arthralgia [Recovered/Resolved]
  - Neck pain [Recovered/Resolved]
  - Feeling jittery [Recovered/Resolved]

NARRATIVE: CASE EVENT DATE: 20210512
